FAERS Safety Report 9399210 (Version 1)
Quarter: 2013Q3

REPORT INFORMATION
  Report Type: Spontaneous
  Country: GB (occurrence: GB)
  Receive Date: 20130710
  Receipt Date: 20130710
  Transmission Date: 20140515
  Serious: Yes (Other)
  Sender: FDA-Public Use
  Company Number: AUR-APL-2013-05626

PATIENT
  Age: 78 Year
  Sex: Male
  Weight: 76.2 kg

DRUGS (21)
  1. AMOXICILLIN [Suspect]
     Indication: PRODUCT USED FOR UNKNOWN INDICATION
     Dates: start: 20130520
  2. ALENDRONIC ACID (ALENDRONIC ACID) [Concomitant]
  3. BECLOMETASONE (BECLOMETASONE) [Concomitant]
  4. CALCICHEW D3 (LEKOVIT CA) [Concomitant]
  5. CARBOCISTEINE (CARBOCISTEINE) [Concomitant]
  6. CITALOPRAM (CITALOPRAM) [Concomitant]
  7. DOXAZOSIN (DOXAZOSIN) [Concomitant]
  8. DOXYCYCLINE (DOXYCYCLINE) [Concomitant]
  9. FINASTERIDE (FINASTERIDE) [Concomitant]
  10. FUROSEMIDE (FUROSEMIDE) [Concomitant]
  11. LOSARTAN (LOSARTAN) [Concomitant]
  12. OMEPRAZOLE (OMEPRAZOLE) [Concomitant]
  13. PARACETAMOL (PARACETAMOL) [Concomitant]
  14. PREDNISOLONE (PREDNISOLONE) [Concomitant]
  15. SALBUTAMOL (SALBUTAMOL) [Concomitant]
  16. SERETIDE (SERETIDE) [Concomitant]
  17. SIMVASTATIN (SIMVASTATIN) [Concomitant]
  18. TIOTROPIUM (TIOTROPIUM) [Concomitant]
  19. VENTOLIN (SALBUTAMOL) [Concomitant]
  20. ZOMORPH (MORPHINE SULFATE) [Concomitant]
  21. ZOPICLONE (ZOPICLONE) [Concomitant]

REACTIONS (1)
  - Hallucination [None]
